FAERS Safety Report 8563490-9 (Version None)
Quarter: 2012Q3

REPORT INFORMATION
  Report Type: 
  Country: None (occurrence: None)
  Receive Date: 20120802
  Receipt Date: 20120723
  Transmission Date: 20120928
  Serious: Yes (Other)
  Sender: FDA-Public Use
  Company Number: US-MSD-1207USA010702

PATIENT

DRUGS (14)
  1. ZOCOR [Suspect]
     Dosage: UNK, QD
     Route: 048
  2. ATACAND HCT [Suspect]
     Dosage: 16+2.5 MG, QD
     Route: 048
  3. DOLAMIN FLEX [Concomitant]
     Route: 048
  4. OMEPRAZOLE [Concomitant]
     Route: 048
  5. GOTU KOLA [Concomitant]
     Dosage: UNK, TID
     Route: 048
  6. ATACAND [Suspect]
     Dosage: UNK
     Route: 048
  7. ATACAND HCT [Suspect]
     Dosage: 16+5MG QD
     Route: 048
  8. OMEPRAZOLE [Concomitant]
     Route: 048
  9. GINKGO [Concomitant]
     Dosage: UNK
     Route: 048
  10. GINKGO [Concomitant]
     Dosage: UNK UNK, TID
     Route: 048
  11. GINKGO [Concomitant]
     Dosage: UNK UNK, TID
     Route: 048
  12. NEOSALDINA (CAFFEINE (+) DIPYRONE (+) ISOMETHEPTENE HYDROCHLORIDE) [Concomitant]
     Route: 048
  13. ACETAMINOPHEN [Concomitant]
     Dosage: UNK, BID
  14. GINKGO [Concomitant]
     Dosage: UNK UNK, TID
     Route: 048

REACTIONS (9)
  - CHOLELITHIASIS [None]
  - BLOOD PRESSURE INADEQUATELY CONTROLLED [None]
  - HYPERCHOLESTEROLAEMIA [None]
  - HYPOTENSION [None]
  - ARTHRALGIA [None]
  - CHOLECYSTITIS [None]
  - DRUG INEFFECTIVE [None]
  - ANXIETY [None]
  - INSOMNIA [None]
